FAERS Safety Report 23940931 (Version 1)
Quarter: 2024Q2

REPORT INFORMATION
  Report Type: Spontaneous
  Country: US (occurrence: US)
  Receive Date: 20240605
  Receipt Date: 20240605
  Transmission Date: 20240715
  Serious: No
  Sender: FDA-Public Use
  Company Number: US-009507513-2405USA004154

PATIENT
  Age: 25 Year
  Sex: Male

DRUGS (8)
  1. TRUSOPT [Suspect]
     Active Substance: DORZOLAMIDE HYDROCHLORIDE
     Indication: Intraocular pressure increased
     Dosage: BID; SINCE POSTOPERATIVE DAY 4; STOPPED IN POSTOPERATIVE WEEK 1
     Route: 047
  2. TIMOLOL [Suspect]
     Active Substance: TIMOLOL
     Indication: Intraocular pressure increased
     Dosage: BID; SINCE POSTOPERATIVE DAY 1
     Route: 061
  3. PREDNISOLONE ACETATE [Concomitant]
     Active Substance: PREDNISOLONE ACETATE
     Dosage: UNK, BID
  4. DEXAMETHASONE;NEOMYCIN;POLYMYXIN [Concomitant]
     Dosage: UNK, QD
  5. PREDNISOLONE [Concomitant]
     Active Substance: PREDNISOLONE
     Indication: Inflammation of wound
     Dosage: SINCE POSTOPERATIVE DAY 1
  6. PREDNISOLONE [Concomitant]
     Active Substance: PREDNISOLONE
     Indication: Post procedural inflammation
     Dosage: INCREASED TO QID; SINCE POSTOPERATIVE WEEK 1
  7. MOXIFLOXACIN [Concomitant]
     Active Substance: MOXIFLOXACIN
  8. GATIFLOXACIN [Concomitant]
     Active Substance: GATIFLOXACIN
     Indication: Infection prophylaxis
     Dosage: QID; SINCE POSTOPERATIVE DAY 1

REACTIONS (1)
  - Intraocular pressure decreased [Recovered/Resolved]
